FAERS Safety Report 17515085 (Version 2)
Quarter: 2020Q2

REPORT INFORMATION
  Report Type: Spontaneous
  Country: US (occurrence: US)
  Receive Date: 20200309
  Receipt Date: 20200412
  Transmission Date: 20200713
  Serious: No
  Sender: FDA-Public Use
  Company Number: NVSC2020US055822

PATIENT

DRUGS (1)
  1. DEXTROAMPHET SACCHARAT, AMPHET ASPARTATE, DEXTROAMPHET SULFATE AND AMPHET SULFAT [Suspect]
     Active Substance: AMPHETAMINE ASPARTATE\AMPHETAMINE SULFATE\DEXTROAMPHETAMINE SACCHARATE\DEXTROAMPHETAMINE SULFATE
     Indication: PRODUCT USED FOR UNKNOWN INDICATION
     Dosage: UNK
     Route: 065
     Dates: start: 20200206

REACTIONS (12)
  - Asthenia [Unknown]
  - Product physical issue [Unknown]
  - Product odour abnormal [Unknown]
  - Suspected counterfeit product [Unknown]
  - Product colour issue [Unknown]
  - Foreign body sensation in eyes [Unknown]
  - Tinnitus [Unknown]
  - Secretion discharge [Unknown]
  - Wrong technique in product usage process [Unknown]
  - Heart rate decreased [Unknown]
  - Headache [Unknown]
  - Dry eye [Unknown]
